FAERS Safety Report 7450536-4 (Version None)
Quarter: 2011Q2

REPORT INFORMATION
  Report Type: 
  Country: None (occurrence: None)
  Receive Date: 20110502
  Receipt Date: 20110421
  Transmission Date: 20111010
  Serious: Yes (Death, Other)
  Sender: FDA-Public Use
  Company Number: US-CELGENEUS-163-21880-11033266

PATIENT
  Sex: Male

DRUGS (5)
  1. DILTIAZEM [Concomitant]
     Route: 065
  2. TIMOLOL [Concomitant]
     Route: 065
  3. LYRICA [Concomitant]
     Route: 065
  4. DIGOXIN [Concomitant]
     Route: 065
  5. REVLIMID [Suspect]
     Dosage: 25 MILLIGRAM
     Route: 048
     Dates: start: 20110315, end: 20110328

REACTIONS (3)
  - DEATH [None]
  - NEUTROPENIA [None]
  - FAILURE TO THRIVE [None]
